FAERS Safety Report 9862593 (Version 1)
Quarter: 2014Q1

REPORT INFORMATION
  Report Type: Spontaneous
  Country: IE (occurrence: IE)
  Receive Date: 20140203
  Receipt Date: 20140203
  Transmission Date: 20141002
  Serious: Yes (Other)
  Sender: FDA-Public Use
  Company Number: IE-PFIZER INC-2014027907

PATIENT
  Age: 32 Year
  Sex: Female

DRUGS (6)
  1. SYNAREL [Suspect]
     Indication: IN VITRO FERTILISATION
     Dosage: UNK
     Route: 045
     Dates: start: 20131105, end: 20131129
  2. GONAL-F [Suspect]
     Indication: IN VITRO FERTILISATION
     Dosage: 150 IU, 1X/DAY
     Dates: start: 20131129
  3. GONAL-F [Suspect]
     Dosage: 225 IU, 1X/DAY
     Dates: start: 20131204
  4. LUVERIS [Suspect]
     Indication: IN VITRO FERTILISATION
     Dosage: 75 IU, 1X/DAY
     Dates: start: 20131129
  5. LUVERIS [Suspect]
     Dosage: 75 IU, 1X/DAY
     Dates: start: 20131204
  6. CYCLOGEST ^COLLINS^ [Concomitant]
     Dosage: 400 MG, 2X/DAY

REACTIONS (1)
  - Ovarian hyperstimulation syndrome [Recovered/Resolved]
